FAERS Safety Report 22220118 (Version 1)
Quarter: 2023Q2

REPORT INFORMATION
  Report Type: Report from Study
  Country: CA (occurrence: CA)
  Receive Date: 20230417
  Receipt Date: 20230417
  Transmission Date: 20230722
  Serious: Yes (Other)
  Sender: FDA-Public Use
  Company Number: CA-TAKEDA-2021TUS048841

PATIENT
  Age: 25 Year
  Sex: Male

DRUGS (7)
  1. VEDOLIZUMAB [Suspect]
     Active Substance: VEDOLIZUMAB
     Indication: Colitis ulcerative
     Dosage: 300 MILLIGRAM
     Route: 042
     Dates: start: 20200207
  2. VEDOLIZUMAB [Suspect]
     Active Substance: VEDOLIZUMAB
     Dosage: 300 MILLIGRAM
     Route: 042
  3. DOXYCYCLINE [Concomitant]
     Active Substance: DOXYCYCLINE
     Dosage: 100 MILLIGRAM
  4. CORTENEMA [Concomitant]
     Active Substance: HYDROCORTISONE
     Dosage: UNK
  5. Salofalk [Concomitant]
     Dosage: UNK
  6. CYPROTERONE ACETATE [Concomitant]
     Active Substance: CYPROTERONE ACETATE
     Dosage: UNK
     Dates: start: 20220823
  7. Lupin [Concomitant]
     Dosage: UNK
     Dates: start: 20220823

REACTIONS (4)
  - Colitis ulcerative [Recovered/Resolved]
  - Stress [Recovered/Resolved]
  - Anaemia [Recovered/Resolved]
  - Abdominal pain [Recovered/Resolved]
